FAERS Safety Report 5331779-2 (Version None)
Quarter: 2007Q2

REPORT INFORMATION
  Report Type: 
  Country: None (occurrence: None)
  Receive Date: 20070522
  Receipt Date: 20070509
  Transmission Date: 20071010
  Serious: Yes (Hospitalization)
  Sender: FDA-Public Use
  Company Number: US-AMGEN-STX224066

PATIENT
  Sex: Female

DRUGS (3)
  1. ENBREL [Suspect]
     Indication: PSORIATIC ARTHROPATHY
     Route: 058
     Dates: start: 20070122
  2. ENBREL [Suspect]
     Indication: PSORIASIS
  3. IMURAN [Concomitant]
     Route: 065
     Dates: start: 20010101

REACTIONS (2)
  - HYSTERECTOMY [None]
  - OOPHORECTOMY BILATERAL [None]
